FAERS Safety Report 25513253 (Version 1)
Quarter: 2025Q3

REPORT INFORMATION
  Report Type: Spontaneous
  Country: US (occurrence: US)
  Receive Date: 20250703
  Receipt Date: 20250703
  Transmission Date: 20251020
  Serious: No
  Sender: RADIUS PHARM
  Company Number: US-RADIUS HEALTH INC.-2024US008627

PATIENT
  Sex: Female
  Weight: 54.4 kg

DRUGS (1)
  1. TYMLOS [Suspect]
     Active Substance: ABALOPARATIDE
     Indication: Product used for unknown indication

REACTIONS (9)
  - Feeling abnormal [Unknown]
  - Headache [Unknown]
  - Intentional product misuse [Unknown]
  - Palpitations [Unknown]
  - Fatigue [Unknown]
  - Anxiety [Unknown]
  - Mood swings [Unknown]
  - Irritability [Unknown]
  - Dizziness [Unknown]
